FAERS Safety Report 4384042-0 (Version None)
Quarter: 2004Q2

REPORT INFORMATION
  Report Type: 
  Country: None (occurrence: None)
  Receive Date: 20040607
  Receipt Date: 20040525
  Transmission Date: 20050107
  Serious: Yes (Disabling)
  Sender: FDA-Public Use
  Company Number: GAM-034-04-F

PATIENT
  Age: 17 Year
  Sex: Male
  Weight: 63 kg

DRUGS (8)
  1. OCTAGAM [Suspect]
     Indication: IDIOPATHIC THROMBOCYTOPENIC PURPURA
     Dosage: 25 GRAMS OD, IV
     Route: 042
     Dates: start: 20021105, end: 20021106
  2. OCTAGAM [Suspect]
  3. OCTAGAM [Suspect]
  4. VINCRISTINE [Suspect]
     Indication: HODGKIN'S DISEASE
     Dosage: 1.5MG/M2
  5. PROCARBAZINE [Suspect]
     Indication: HODGKIN'S DISEASE
     Dosage: 100MG/M2 ORALLY
     Route: 048
  6. ADRIAMYCIN PFS [Suspect]
     Indication: HODGKIN'S DISEASE
     Dosage: 40MG/M2 INTRAVENOUS
     Route: 042
  7. ENDOXAN [Suspect]
     Indication: HODGKIN'S DISEASE
     Dosage: 500MG/M2 INTRAVENOUS
     Route: 042
  8. PREDNISONE [Suspect]
     Indication: HODGKIN'S DISEASE
     Dosage: 40-60MG/M2 ORALLY
     Route: 048

REACTIONS (2)
  - DEAFNESS UNILATERAL [None]
  - IDIOPATHIC THROMBOCYTOPENIC PURPURA [None]
